FAERS Safety Report 8287267-7 (Version None)
Quarter: 2012Q2

REPORT INFORMATION
  Report Type: 
  Country: None (occurrence: None)
  Receive Date: 20120416
  Receipt Date: 20120416
  Transmission Date: 20120825
  Serious: Yes (Other)
  Sender: FDA-Public Use
  Company Number: None

PATIENT
  Sex: Male
  Weight: 68.038 kg

DRUGS (1)
  1. CYMBALTA [Suspect]

REACTIONS (4)
  - VITREOUS FLOATERS [None]
  - VISUAL IMPAIRMENT [None]
  - RETINAL TEAR [None]
  - EYE PAIN [None]
